FAERS Safety Report 9458228 (Version 1)
Quarter: 2013Q3

REPORT INFORMATION
  Report Type: Spontaneous
  Country: US (occurrence: None)
  Receive Date: 20130813
  Receipt Date: 20130813
  Transmission Date: 20140515
  Serious: No
  Sender: FDA-Public Use
  Company Number: None

PATIENT
  Age: 151 Day
  Sex: Male
  Weight: 5.7 kg

DRUGS (2)
  1. OMEGAVEN [Suspect]
     Indication: GASTROINTESTINAL DISORDER
     Route: 042
     Dates: start: 20130315
  2. OMEGAVEN [Suspect]
     Indication: LIVER DISORDER
     Route: 042
     Dates: start: 20130315

REACTIONS (1)
  - Feeding tube complication [None]
